FAERS Safety Report 7462419-4 (Version None)
Quarter: 2011Q2

REPORT INFORMATION
  Report Type: 
  Country: None (occurrence: None)
  Receive Date: 20110506
  Receipt Date: 20110502
  Transmission Date: 20111010
  Serious: Yes (Other)
  Sender: FDA-Public Use
  Company Number: US-BRISTOL-MYERS SQUIBB COMPANY-15710890

PATIENT
  Sex: Male

DRUGS (5)
  1. ASPIRIN [Concomitant]
  2. LISINOPRIL [Concomitant]
  3. CRESTOR [Suspect]
     Dosage: DISCONTINUED ~10 DAYS AGO
     Dates: start: 20110101, end: 20110101
  4. METOPROLOL [Concomitant]
  5. WARFARIN SODIUM [Suspect]
     Dosage: WARFARIN SODIUM 5MG,1DF-1.5 TAB EVERY NIGHT,INTERRUPT ON JAN2011.RESTARTED ON APR2011.
     Dates: start: 20101101

REACTIONS (3)
  - PRURITUS [None]
  - MYOCARDIAL INFARCTION [None]
  - DRY SKIN [None]
